FAERS Safety Report 6974956-7 (Version None)
Quarter: 2010Q3

REPORT INFORMATION
  Report Type: 
  Country: None (occurrence: None)
  Receive Date: 20100909
  Receipt Date: 20090115
  Transmission Date: 20110219
  Serious: No
  Sender: FDA-Public Use
  Company Number: US-WYE-H07720609

PATIENT
  Sex: Male
  Weight: 95.34 kg

DRUGS (1)
  1. PRISTIQ [Suspect]
     Indication: ANXIETY
     Route: 048
     Dates: start: 20090110

REACTIONS (2)
  - ANXIETY [None]
  - CONDITION AGGRAVATED [None]
